FAERS Safety Report 4730592-4 (Version None)
Quarter: 2005Q3

REPORT INFORMATION
  Report Type: 
  Country: None (occurrence: None)
  Receive Date: 20050801
  Receipt Date: 20050721
  Transmission Date: 20060218
  Serious: Yes (Congenital Anomaly)
  Sender: FDA-Public Use
  Company Number: PHBS2005IE10670

PATIENT
  Sex: Male

DRUGS (1)
  1. SYNTOCINON [Suspect]
     Route: 064

REACTIONS (6)
  - BRAIN DAMAGE [None]
  - BRAIN HYPOXIA [None]
  - CEREBRAL PALSY [None]
  - DRUG EXPOSURE DURING PREGNANCY [None]
  - NEONATAL HYPOXIA [None]
  - WHEELCHAIR USER [None]
